FAERS Safety Report 4767903-X (Version None)
Quarter: 2005Q3

REPORT INFORMATION
  Report Type: 
  Country: None (occurrence: None)
  Receive Date: 20050912
  Receipt Date: 20050826
  Transmission Date: 20060218
  Serious: Yes (Other)
  Sender: FDA-Public Use
  Company Number: EM2005-0444

PATIENT

DRUGS (2)
  1. PROLEUKIN [Suspect]
     Indication: HIV INFECTION
     Dosage: 12 MIU/DA X 3-5 DAYS, CONT IV INFUS
     Route: 042
  2. ANTIRETROVIRALS (CHLORHEXIDINE GLUCONATE, OXYMETAZOLINE HYDROCHLORIDE) [Suspect]
     Indication: HIV INFECTION
     Dosage: UNK, QD, UNKNOWN

REACTIONS (1)
  - ATYPICAL MYCOBACTERIAL LYMPHADENITIS [None]
